FAERS Safety Report 8469288-4 (Version None)
Quarter: 2012Q2

REPORT INFORMATION
  Report Type: 
  Country: None (occurrence: None)
  Receive Date: 20120626
  Receipt Date: 20120619
  Transmission Date: 20120825
  Serious: Yes (Hospitalization, Other)
  Sender: FDA-Public Use
  Company Number: CA-ELI_LILLY_AND_COMPANY-CA201206006539

PATIENT
  Age: 69 Year
  Sex: Female

DRUGS (20)
  1. ORPHENADRINE CITRATE [Concomitant]
     Dosage: 100 MG, PRN
  2. PREDNISONE TAB [Concomitant]
     Dosage: 5 MG, QD
  3. CENTRUM                            /00554501/ [Concomitant]
     Dosage: UNK
  4. PANTOPRAZOLE [Concomitant]
     Dosage: 40 MG, QD
  5. ASPIRIN [Concomitant]
     Dosage: 80 MG, QD
  6. PSYLLIUM [Suspect]
  7. FORTEO [Suspect]
     Indication: OSTEOPOROSIS
     Dosage: 20 UG, QD
     Route: 058
     Dates: start: 20101130
  8. CRESTOR [Concomitant]
     Dosage: 10 MG, QD
  9. LYRICA [Concomitant]
     Dosage: 150 MG, QD
  10. AMLODIPINE [Concomitant]
     Dosage: 10 MG, QD
  11. EFFEXOR [Concomitant]
     Dosage: 75 MG, QD
  12. EFFEXOR [Concomitant]
     Dosage: 37.5 MG, QD
  13. QUETIAPINE [Concomitant]
     Dosage: 100 MG, QD
  14. D-TABS [Concomitant]
     Dosage: 10000 IU, WEEKLY (1/W)
  15. HYDROMORPHONE HCL [Concomitant]
     Dosage: 4 MG, PRN
  16. SYNTHROID [Concomitant]
     Dosage: 1 MG, QD
  17. PERINDOPRIL ERBUMINE [Concomitant]
     Dosage: 4 MG, QD
  18. MELOXICAM [Concomitant]
     Dosage: 7.5 MG, QD
  19. SINGULAIR [Concomitant]
     Dosage: 10 MG, QD
  20. EFFEXOR [Concomitant]
     Dosage: 150 MG, QD

REACTIONS (3)
  - PULMONARY EMBOLISM [None]
  - BONE DENSITY DECREASED [None]
  - CARDIAC DISORDER [None]
